APPROVED DRUG PRODUCT: ULTANE
Active Ingredient: SEVOFLURANE
Strength: 100%
Dosage Form/Route: LIQUID;INHALATION
Application: N020478 | Product #001 | TE Code: AN
Applicant: ABBVIE INC
Approved: Jun 7, 1995 | RLD: Yes | RS: Yes | Type: RX